FAERS Safety Report 5739594-2 (Version None)
Quarter: 2008Q2

REPORT INFORMATION
  Report Type: 
  Country: None (occurrence: None)
  Receive Date: 20080515
  Receipt Date: 20080507
  Transmission Date: 20081010
  Serious: Yes (Disabling)
  Sender: FDA-Public Use
  Company Number: ES-AMGEN-US227131

PATIENT
  Sex: Male
  Weight: 65 kg

DRUGS (2)
  1. ENBREL [Suspect]
     Indication: PSORIASIS
     Route: 058
     Dates: start: 20070322, end: 20070521
  2. CEMIDON [Suspect]
     Indication: TUBERCULIN TEST POSITIVE
     Route: 048
     Dates: start: 20070219, end: 20070521

REACTIONS (1)
  - HEPATITIS [None]
